FAERS Safety Report 4602081-9 (Version None)
Quarter: 2005Q1

REPORT INFORMATION
  Report Type: 
  Country: None (occurrence: None)
  Receive Date: 20050215
  Receipt Date: 20041013
  Transmission Date: 20050727
  Serious: Yes (Other)
  Sender: FDA-Public Use
  Company Number: 383453

PATIENT
  Sex: Female

DRUGS (1)
  1. CYTOVENE [Suspect]
     Indication: MULTIPLE SCLEROSIS
     Dosage: 1500 MG DAILY ORAL
     Route: 048
     Dates: start: 20010615, end: 20030515

REACTIONS (10)
  - ALOPECIA [None]
  - DIARRHOEA [None]
  - FALL [None]
  - GRAND MAL CONVULSION [None]
  - SKIN NODULE [None]
  - TEETH BRITTLE [None]
  - TOOTH DISCOLOURATION [None]
  - TOOTH DISORDER [None]
  - TOOTH FRACTURE [None]
  - VOMITING PROJECTILE [None]
